FAERS Safety Report 19802327 (Version 1)
Quarter: 2021Q3

REPORT INFORMATION
  Report Type: Spontaneous
  Country: US (occurrence: US)
  Receive Date: 20210907
  Receipt Date: 20210907
  Transmission Date: 20211014
  Serious: Yes (Other)
  Sender: FDA-Public Use
  Company Number: None

PATIENT
  Age: 63 Year
  Sex: Female
  Weight: 81 kg

DRUGS (2)
  1. AFRIN [Suspect]
     Active Substance: OXYMETAZOLINE
     Indication: SINUS CONGESTION
     Dosage: ?          QUANTITY:1 SPRAY(S);OTHER ROUTE:NASAL SPRAY?
     Dates: start: 20210806, end: 20210902
  2. GENERIC TYLENOL [Concomitant]

REACTIONS (3)
  - Product substitution issue [None]
  - Epistaxis [None]
  - Haemoglobin decreased [None]

NARRATIVE: CASE EVENT DATE: 20210904
